FAERS Safety Report 7416282-8 (Version None)
Quarter: 2011Q2

REPORT INFORMATION
  Report Type: 
  Country: None (occurrence: None)
  Receive Date: 20110414
  Receipt Date: 20110408
  Transmission Date: 20111010
  Serious: Yes (Death, Hospitalization)
  Sender: FDA-Public Use
  Company Number: US-ELI_LILLY_AND_COMPANY-US201103006881

PATIENT
  Sex: Female
  Weight: 90.249 kg

DRUGS (8)
  1. GEMZAR [Suspect]
     Indication: CERVIX CARCINOMA
     Dosage: 1500 MG, DAY 1 + 8 OF 28 DAY CYCLE
     Route: 042
     Dates: start: 20100830, end: 20101011
  2. PROCRIT [Concomitant]
  3. IRON [Concomitant]
     Dosage: UNK, UNKNOWN
     Route: 065
  4. MULTI-VITAMIN [Concomitant]
     Dosage: UNK, UNKNOWN
     Route: 065
  5. MAGNESIUM [Concomitant]
     Dosage: UNK, UNKNOWN
     Route: 065
  6. LISINOPRIL [Concomitant]
     Dosage: UNK, UNKNOWN
     Route: 065
  7. METOPROLOL TARTRATE [Concomitant]
     Dosage: UNK, UNKNOWN
     Route: 065
  8. NEULASTA [Suspect]
     Dosage: UNK

REACTIONS (4)
  - RENAL FAILURE ACUTE [None]
  - HYDRONEPHROSIS [None]
  - METASTATIC NEOPLASM [None]
  - HYPERTENSION [None]
